FAERS Safety Report 10178010 (Version 1)
Quarter: 2014Q2

REPORT INFORMATION
  Report Type: Report from Study
  Country: DE (occurrence: DE)
  Receive Date: 20140517
  Receipt Date: 20140517
  Transmission Date: 20141212
  Serious: Yes (Death)
  Sender: FDA-Public Use
  Company Number: DE-ROCHE-1399623

PATIENT
  Age: 75 Year
  Sex: Female
  Weight: 94 kg

DRUGS (36)
  1. BEVACIZUMAB [Suspect]
     Indication: COLORECTAL CANCER
     Route: 042
     Dates: start: 20130808, end: 20130808
  2. BEVACIZUMAB [Suspect]
     Route: 042
     Dates: start: 20131210, end: 20131210
  3. 5-FLUOROURACIL [Concomitant]
     Indication: COLORECTAL CANCER
     Route: 042
     Dates: start: 20130806, end: 20131211
  4. 5-FLUOROURACIL [Concomitant]
     Route: 040
     Dates: start: 20130806, end: 20131212
  5. 5-FLUOROURACIL [Concomitant]
     Route: 042
     Dates: start: 20130820, end: 20130822
  6. 5-FLUOROURACIL [Concomitant]
     Route: 040
     Dates: start: 20130820, end: 20130821
  7. 5-FLUOROURACIL [Concomitant]
     Route: 042
     Dates: start: 20130903, end: 20130905
  8. 5-FLUOROURACIL [Concomitant]
     Route: 042
     Dates: start: 20130917, end: 20130919
  9. 5-FLUOROURACIL [Concomitant]
     Route: 042
     Dates: start: 20130801, end: 20130803
  10. 5-FLUOROURACIL [Concomitant]
     Route: 042
     Dates: start: 20130815, end: 20130817
  11. 5-FLUOROURACIL [Concomitant]
     Route: 042
     Dates: start: 20131112, end: 20131114
  12. 5-FLUOROURACIL [Concomitant]
     Route: 042
     Dates: start: 20131126, end: 20131128
  13. 5-FLUOROURACIL [Concomitant]
     Route: 040
     Dates: start: 20130903, end: 20130904
  14. 5-FLUOROURACIL [Concomitant]
     Route: 040
     Dates: start: 20130917, end: 20130918
  15. 5-FLUOROURACIL [Concomitant]
     Route: 040
     Dates: start: 20130801, end: 20130802
  16. 5-FLUOROURACIL [Concomitant]
     Route: 040
     Dates: start: 20130815, end: 20130816
  17. 5-FLUOROURACIL [Concomitant]
     Route: 040
     Dates: start: 20130829, end: 20130830
  18. 5-FLUOROURACIL [Concomitant]
     Route: 040
     Dates: start: 20131112, end: 20131113
  19. 5-FLUOROURACIL [Concomitant]
     Route: 040
     Dates: start: 20131126, end: 20131127
  20. 5-FLUOROURACIL [Concomitant]
     Route: 040
     Dates: start: 20131210, end: 20131211
  21. TORASEMID [Concomitant]
     Indication: HYPERTENSION
     Route: 048
     Dates: start: 20130623
  22. VALSARTAN [Concomitant]
     Indication: HYPERTENSION
     Route: 048
     Dates: start: 19980720
  23. HYDROCHLOROTHIAZIDE [Concomitant]
     Indication: HYPERTENSION
     Route: 065
     Dates: start: 19980720
  24. PANTOZOL (GERMANY) [Concomitant]
     Indication: PROPHYLAXIS
     Route: 048
     Dates: start: 20130623
  25. L-THYROXIN [Concomitant]
     Indication: HORMONE REPLACEMENT THERAPY
     Route: 048
     Dates: start: 20130623
  26. POTASSIUM CHLORIDE [Concomitant]
     Dosage: 40 MVAL
     Route: 042
     Dates: start: 20131210, end: 20131210
  27. OXALIPLATIN [Concomitant]
     Indication: COLORECTAL CANCER
     Route: 065
     Dates: start: 20130806, end: 20130820
  28. OXALIPLATIN [Concomitant]
     Route: 065
     Dates: start: 20130903, end: 20131203
  29. OXALIPLATIN [Concomitant]
     Route: 065
     Dates: start: 20130820, end: 20130820
  30. OXALIPLATIN [Concomitant]
     Route: 065
     Dates: start: 20130917, end: 20130917
  31. OXALIPLATIN [Concomitant]
     Route: 065
     Dates: start: 20131001, end: 20131001
  32. OXALIPLATIN [Concomitant]
     Route: 065
     Dates: start: 20131015, end: 20131015
  33. OXALIPLATIN [Concomitant]
     Route: 065
     Dates: start: 20131029, end: 20131029
  34. OXALIPLATIN [Concomitant]
     Route: 065
     Dates: start: 20131112, end: 20131112
  35. OXALIPLATIN [Concomitant]
     Route: 065
     Dates: start: 20131126, end: 20131126
  36. OXALIPLATIN [Concomitant]
     Route: 065
     Dates: start: 20131210, end: 20131210

REACTIONS (1)
  - Death [Fatal]
